FAERS Safety Report 9426047 (Version 2)
Quarter: 2013Q3

REPORT INFORMATION
  Report Type: Spontaneous
  Country: ES (occurrence: ES)
  Receive Date: 20130730
  Receipt Date: 20130820
  Transmission Date: 20140515
  Serious: Yes (Other)
  Sender: FDA-Public Use
  Company Number: ES-ROCHE-1254340

PATIENT
  Age: 81 Year
  Sex: Male
  Weight: 85 kg

DRUGS (2)
  1. ZELBORAF [Suspect]
     Indication: MALIGNANT MELANOMA
     Route: 048
     Dates: start: 20130502
  2. PREGABALIN [Concomitant]
     Route: 048
     Dates: start: 19960425

REACTIONS (1)
  - Trigeminal neuralgia [Recovered/Resolved]
